FAERS Safety Report 5668689-7 (Version None)
Quarter: 2008Q1

REPORT INFORMATION
  Report Type: 
  Country: None (occurrence: None)
  Receive Date: 20080312
  Receipt Date: 20080303
  Transmission Date: 20080703
  Serious: Yes (Hospitalization)
  Sender: FDA-Public Use
  Company Number: 066-C5013-08030102

PATIENT
  Age: 74 Year
  Sex: Female
  Weight: 55 kg

DRUGS (3)
  1. CC-5013\PLACEBO (LENALIDOMIDE) (CAPSULES) [Suspect]
     Indication: MULTIPLE MYELOMA
     Dosage: 5 MG, DAILY, ORAL
     Route: 048
     Dates: start: 20071129, end: 20080219
  2. MELPHALAN (MELPHALAN) [Suspect]
     Indication: MULTIPLE MYELOMA
     Dosage: 6 MG, DAILY; ORAL
     Route: 048
     Dates: start: 20071120, end: 20080202
  3. PREDNISONE TAB [Suspect]
     Indication: MULTIPLE MYELOMA
     Dosage: 100 MG, DAILY, ORAL
     Route: 048
     Dates: start: 20071129, end: 20080202

REACTIONS (4)
  - ANAEMIA [None]
  - COLITIS [None]
  - DIVERTICULITIS [None]
  - NEUTROPENIA [None]
